FAERS Safety Report 20495739 (Version 1)
Quarter: 2022Q1

REPORT INFORMATION
  Report Type: Spontaneous
  Country: PH (occurrence: PH)
  Receive Date: 20220221
  Receipt Date: 20220221
  Transmission Date: 20220423
  Serious: Yes (Other)
  Sender: FDA-Public Use
  Company Number: PH-BoehringerIngelheim-2022-BI-150762

PATIENT
  Age: 60 Year
  Sex: Female

DRUGS (1)
  1. LINAGLIPTIN [Suspect]
     Active Substance: LINAGLIPTIN
     Indication: Diabetes mellitus
     Dosage: MD SHIFTED PATIENT TO GLYXAMBI 25/5MG OD (INDICATION: FOR DIABETES) AFTER 3 MONTHS OF TRAJENTA.

REACTIONS (2)
  - Left ventricular failure [Unknown]
  - Diabetes mellitus inadequate control [Recovered/Resolved]
